FAERS Safety Report 23401405 (Version 1)
Quarter: 2024Q1

REPORT INFORMATION
  Report Type: Report from Study
  Country: US (occurrence: US)
  Receive Date: 20240115
  Receipt Date: 20240115
  Transmission Date: 20240410
  Serious: Yes (Other)
  Sender: FDA-Public Use
  Company Number: US-ABBVIE-5584974

PATIENT
  Sex: Male

DRUGS (1)
  1. RINVOQ [Suspect]
     Active Substance: UPADACITINIB
     Indication: Ankylosing spondylitis
     Route: 048
     Dates: start: 20230927

REACTIONS (4)
  - Bladder cancer stage IV [Recovering/Resolving]
  - Ankylosing spondylitis [Recovering/Resolving]
  - Eye disorder [Recovering/Resolving]
  - Single functional kidney [Unknown]
